FAERS Safety Report 6771705-2 (Version None)
Quarter: 2010Q2

REPORT INFORMATION
  Report Type: 
  Country: None (occurrence: None)
  Receive Date: 20100616
  Receipt Date: 20090629
  Transmission Date: 20101027
  Serious: No
  Sender: FDA-Public Use
  Company Number: US-ASTRAZENECA-2009UW18168

PATIENT
  Age: 70 Year
  Sex: Female
  Weight: 54 kg

DRUGS (6)
  1. ATACAND [Suspect]
     Indication: HYPERTENSION
     Route: 048
     Dates: start: 19990101
  2. ATACAND [Suspect]
     Route: 048
     Dates: start: 20040101
  3. PREMARIN [Concomitant]
  4. MAGNESIUM [Concomitant]
  5. LIPITOR [Concomitant]
  6. COLITIS MEDICATION [Concomitant]
     Indication: COLITIS

REACTIONS (2)
  - BLOOD PRESSURE INCREASED [None]
  - DRUG INEFFECTIVE [None]
